FAERS Safety Report 20074164 (Version 2)
Quarter: 2022Q1

REPORT INFORMATION
  Report Type: Spontaneous
  Country: FR (occurrence: FR)
  Receive Date: 20211116
  Receipt Date: 20220111
  Transmission Date: 20220424
  Serious: Yes (Life-Threatening, Other)
  Sender: FDA-Public Use
  Company Number: None

PATIENT
  Age: 35 Year
  Sex: Female

DRUGS (10)
  1. NOREPINEPHRINE\NOREPINEPHRINE BITARTRATE [Suspect]
     Active Substance: NOREPINEPHRINE\NOREPINEPHRINE BITARTRATE
     Indication: Product used for unknown indication
     Dosage: 8 MILLIGRAM, QD ONCE A DAY (8MG (ONE AMPOULE)
     Route: 042
     Dates: start: 20210806, end: 20210806
  2. NOREPINEPHRINE\NOREPINEPHRINE BITARTRATE [Suspect]
     Active Substance: NOREPINEPHRINE\NOREPINEPHRINE BITARTRATE
     Dosage: UNK
     Route: 042
  3. ACUPAN [Suspect]
     Active Substance: NEFOPAM HYDROCHLORIDE
     Indication: Perioperative analgesia
     Dosage: 20 MILLIGRAM, QD, ONCE A DAY
     Route: 042
     Dates: start: 20210806
  4. DROPERIDOL [Suspect]
     Active Substance: DROPERIDOL
     Indication: Perioperative analgesia
     Dosage: 0.63 MILLIGRAM, QD, ONCE A DAY
     Route: 042
     Dates: start: 20210806
  5. ATROPINE [Suspect]
     Active Substance: ATROPINE
     Indication: Presyncope
     Dosage: 0.7 MILLIGRAM, QD, ONCE A DAY
     Route: 042
     Dates: start: 20210806
  6. ALFENTANIL HYDROCHLORIDE [Suspect]
     Active Substance: ALFENTANIL HYDROCHLORIDE
     Indication: Perioperative analgesia
     Dosage: 1.5 MILLIGRAM, QD, ONCE A DAY
     Route: 042
     Dates: start: 20210806
  7. KETOPROFEN [Suspect]
     Active Substance: KETOPROFEN
     Indication: Perioperative analgesia
     Dosage: 100 MILLIGRAM, QD, ONCE A DAY
     Route: 042
     Dates: start: 20210806
  8. PHLOROGLUCINOL\1,3,5-TRIMETHOXYBENZENE [Concomitant]
     Active Substance: PHLOROGLUCINOL\1,3,5-TRIMETHOXYBENZENE
     Indication: Cervical conisation
     Dosage: UNK, NON ADMINISTR???
     Route: 042
  9. PHLOROGLUCINOL\1,3,5-TRIMETHOXYBENZENE [Concomitant]
     Active Substance: PHLOROGLUCINOL\1,3,5-TRIMETHOXYBENZENE
     Indication: Perioperative analgesia
     Dosage: UNK, QD, ONCE A DAY (80MG/0.08MG (2 AMPOULES
     Route: 042
     Dates: start: 20210806
  10. PHLOROGLUCINOL\1,3,5-TRIMETHOXYBENZENE [Concomitant]
     Active Substance: PHLOROGLUCINOL\1,3,5-TRIMETHOXYBENZENE
     Dosage: 120 MILLIGRAM
     Route: 042
     Dates: start: 20210806

REACTIONS (12)
  - Acute pulmonary oedema [Recovered/Resolved]
  - Arrhythmia [Recovered/Resolved]
  - Hypertension [Recovered/Resolved]
  - Product administration error [Recovered/Resolved]
  - Product storage error [Recovered/Resolved]
  - Product use in unapproved indication [Unknown]
  - Heart rate increased [Recovered/Resolved]
  - Product prescribing issue [Unknown]
  - Sinus tachycardia [Recovered/Resolved]
  - Product appearance confusion [Unknown]
  - Wrong product administered [Unknown]
  - Bradycardia [Recovered/Resolved]

NARRATIVE: CASE EVENT DATE: 20210806
